FAERS Safety Report 7062081-9 (Version None)
Quarter: 2010Q4

REPORT INFORMATION
  Report Type: 
  Country: None (occurrence: None)
  Receive Date: 20101026
  Receipt Date: 20101018
  Transmission Date: 20110411
  Serious: Yes (Other)
  Sender: FDA-Public Use
  Company Number: PT-TEVA-252579ISR

PATIENT
  Age: 35 Year
  Sex: Female

DRUGS (1)
  1. FLUOROURACIL [Suspect]

REACTIONS (2)
  - BONE MARROW FAILURE [None]
  - MUCOSAL INFLAMMATION [None]
